FAERS Safety Report 18246636 (Version 2)
Quarter: 2020Q3

REPORT INFORMATION
  Report Type: Report from Study
  Country: CH (occurrence: CH)
  Receive Date: 20200909
  Receipt Date: 20200930
  Transmission Date: 20201103
  Serious: Yes (Hospitalization, Other)
  Sender: FDA-Public Use
  Company Number: NVSC2020CH212063

PATIENT
  Age: 62 Year
  Sex: Female
  Weight: 40.8 kg

DRUGS (3)
  1. TAGRISSO [Suspect]
     Active Substance: OSIMERTINIB
     Indication: LUNG CANCER METASTATIC
     Dosage: 80 MG
     Route: 065
     Dates: start: 20190301, end: 20200721
  2. INC280 [Suspect]
     Active Substance: CAPMATINIB
     Indication: LUNG CANCER METASTATIC
     Dosage: 200 MG, QD
     Route: 048
     Dates: start: 20200704, end: 20200716
  3. INC280 [Suspect]
     Active Substance: CAPMATINIB
     Dosage: 200 MG, BID
     Route: 048
     Dates: start: 20200717, end: 20200721

REACTIONS (4)
  - Dyspnoea [Recovered/Resolved with Sequelae]
  - Pulmonary embolism [Recovered/Resolved]
  - Thrombocytopenia [Not Recovered/Not Resolved]
  - Diarrhoea [Recovered/Resolved]

NARRATIVE: CASE EVENT DATE: 20200709
